FAERS Safety Report 8677071 (Version 2)
Quarter: 2012Q4

REPORT INFORMATION
  Report Type: Report from Study
  Country: FR (occurrence: FR)
  Receive Date: 20120723
  Receipt Date: 20120829
  Transmission Date: 20130627
  Serious: Yes (Death, Hospitalization)
  Sender: FDA-Public Use
  Company Number: FR-EISAI INC-E7389-02687-CLI-FR

PATIENT
  Sex: Male
  Weight: 48 kg

DRUGS (1)
  1. E7389 (BOLD) [Suspect]
     Indication: LUNG CANCER
     Route: 041
     Dates: start: 20120118

REACTIONS (2)
  - Septic shock [Fatal]
  - Respiratory distress [Not Recovered/Not Resolved]
